FAERS Safety Report 5302789-6 (Version None)
Quarter: 2007Q2

REPORT INFORMATION
  Report Type: 
  Country: None (occurrence: None)
  Receive Date: 20070419
  Receipt Date: 20070406
  Transmission Date: 20071010
  Serious: Yes (Hospitalization)
  Sender: FDA-Public Use
  Company Number: KR-MERCK-0704KOR00003

PATIENT
  Age: 58 Year
  Sex: Female
  Weight: 57 kg

DRUGS (1)
  1. FOSAMAX PLUS D [Suspect]
     Indication: OSTEOPOROSIS
     Route: 048
     Dates: start: 20060811, end: 20060911

REACTIONS (1)
  - URINARY INCONTINENCE [None]
